FAERS Safety Report 14882936 (Version 2)
Quarter: 2018Q3

REPORT INFORMATION
  Report Type: Spontaneous
  Country: US (occurrence: US)
  Receive Date: 20180511
  Receipt Date: 20180704
  Transmission Date: 20181010
  Serious: Yes (Hospitalization, Other)
  Sender: FDA-Public Use
  Company Number: US-ASTRAZENECA-2018SE60596

PATIENT
  Age: 59 Year
  Sex: Female
  Weight: 76.2 kg

DRUGS (7)
  1. THYROXIN [Concomitant]
     Active Substance: LEVOTHYROXINE
     Indication: THYROID DISORDER
     Route: 048
     Dates: start: 2001
  2. SINGULAIR [Concomitant]
     Active Substance: MONTELUKAST SODIUM
     Indication: MULTIPLE ALLERGIES
     Route: 048
  3. ASPIRIN. [Concomitant]
     Active Substance: ASPIRIN
     Indication: CATHETERISATION CARDIAC
     Route: 048
     Dates: start: 2015
  4. SYMBICORT [Suspect]
     Active Substance: BUDESONIDE\FORMOTEROL FUMARATE DIHYDRATE
     Indication: CHRONIC OBSTRUCTIVE PULMONARY DISEASE
     Dosage: 160/4.5 MCG/INHAL 2 PUFFS TWICE DAILY
     Route: 055
  5. LOVASTATIN. [Concomitant]
     Active Substance: LOVASTATIN
     Indication: BLOOD CHOLESTEROL ABNORMAL
     Route: 048
  6. XANAX [Concomitant]
     Active Substance: ALPRAZOLAM
     Indication: ANXIETY
     Dosage: THREE TIMES A DAY
     Route: 048
  7. OXYGEN. [Concomitant]
     Active Substance: OXYGEN
     Dosage: 2.5L UNKNOWN
     Route: 045
     Dates: start: 2010

REACTIONS (10)
  - Aneurysm [Unknown]
  - Visual acuity reduced [Unknown]
  - Thyroid disorder [Unknown]
  - Device issue [Unknown]
  - Colon cancer [Unknown]
  - Blood cholesterol increased [Unknown]
  - Hiatus hernia [Unknown]
  - Back disorder [Unknown]
  - Ill-defined disorder [Unknown]
  - Limb discomfort [Unknown]

NARRATIVE: CASE EVENT DATE: 2010
